FAERS Safety Report 4597816-8 (Version None)
Quarter: 2005Q1

REPORT INFORMATION
  Report Type: 
  Country: None (occurrence: None)
  Receive Date: 20050125
  Receipt Date: 20040929
  Transmission Date: 20050727
  Serious: No
  Sender: FDA-Public Use
  Company Number: USA020820470

PATIENT
  Age: 81 Year
  Sex: Female
  Weight: 42 kg

DRUGS (16)
  1. EVISTA [Suspect]
     Indication: OSTEOPOROSIS
     Dosage: 60 MG DAY
     Dates: start: 20020301, end: 20040621
  2. FORTEO [Suspect]
     Indication: OSTEOPOROSIS
     Dosage: 20 UG/1 DAY
     Dates: start: 20040621
  3. FORTEO [Suspect]
     Indication: SPINAL FRACTURE
     Dosage: 20 UG/1 DAY
     Dates: start: 20040621
  4. PREVACID [Concomitant]
  5. NITRO PATCH (GLYCERYL TRINITRATE) [Concomitant]
  6. NIACIN [Concomitant]
  7. VITAMINS [Concomitant]
  8. TYLENOL [Concomitant]
  9. DARVOCET-N 100 [Concomitant]
  10. CALCIUM PLUS MINERALS [Concomitant]
  11. VITAMIN B COMPLEX CAP [Concomitant]
  12. LIPITOR [Concomitant]
  13. ACIPHEX [Concomitant]
  14. NEXIUM [Concomitant]
  15. XANAX (ALPRAZOLAM DUM) [Concomitant]
  16. MINITRAN (GLYCERYL TRINITRATE) [Concomitant]

REACTIONS (9)
  - BACK PAIN [None]
  - BLOOD URINE [None]
  - CONTUSION [None]
  - DYSURIA [None]
  - FAECES DISCOLOURED [None]
  - INJECTION SITE ERYTHEMA [None]
  - INJECTION SITE HAEMORRHAGE [None]
  - INSOMNIA [None]
  - NERVOUSNESS [None]
